FAERS Safety Report 4990374-5 (Version None)
Quarter: 2006Q2

REPORT INFORMATION
  Report Type: 
  Country: None (occurrence: None)
  Receive Date: 20060502
  Receipt Date: 20060502
  Transmission Date: 20061013
  Serious: Yes (Hospitalization)
  Sender: FDA-Public Use
  Company Number: None

PATIENT
  Age: 78 Year
  Sex: Female
  Weight: 73 kg

DRUGS (2)
  1. THIORIDAZINE HCL [Suspect]
     Indication: MENTAL DISORDER
     Dosage: 50MG  Q8H  PO
     Route: 048
     Dates: start: 20060408, end: 20060412
  2. MELLARIL [Concomitant]

REACTIONS (4)
  - BLOOD CREATINE PHOSPHOKINASE MB INCREASED [None]
  - NEUROLEPTIC MALIGNANT SYNDROME [None]
  - PYREXIA [None]
  - THROMBOCYTOPENIA [None]
